FAERS Safety Report 4271584-1 (Version None)
Quarter: 2004Q1

REPORT INFORMATION
  Report Type: 
  Country: None (occurrence: None)
  Receive Date: 20040117
  Receipt Date: 20030416
  Transmission Date: 20041129
  Serious: Yes (Other)
  Sender: FDA-Public Use
  Company Number: USA-2003-0006015

PATIENT
  Sex: Female

DRUGS (1)
  1. OXYCONTIN [Suspect]

REACTIONS (10)
  - ASTHENIA [None]
  - BRADYPNOEA [None]
  - CONSTIPATION [None]
  - DECREASED APPETITE [None]
  - DIZZINESS [None]
  - DRUG DEPENDENCE [None]
  - DRY MOUTH [None]
  - HYPERHIDROSIS [None]
  - NAUSEA [None]
  - VOMITING [None]
